FAERS Safety Report 13082514 (Version 2)
Quarter: 2017Q1

REPORT INFORMATION
  Report Type: Report from Study
  Country: None (occurrence: US)
  Receive Date: 20170103
  Receipt Date: 20170220
  Transmission Date: 20170428
  Serious: Yes (Other)
  Sender: FDA-Public Use
  Company Number: US-ABBVIE-16P-163-1825613-00

PATIENT
  Age: 32 Year
  Sex: Female
  Weight: 99.88 kg

DRUGS (1)
  1. LUPRON DEPOT [Suspect]
     Active Substance: LEUPROLIDE ACETATE
     Indication: ENDOMETRIOSIS
     Route: 050
     Dates: start: 20161028, end: 201612

REACTIONS (4)
  - Tonsillolith [Unknown]
  - Tonsillitis [Unknown]
  - Pyrexia [Recovered/Resolved]
  - Incision site infection [Recovered/Resolved]

NARRATIVE: CASE EVENT DATE: 20161229
